FAERS Safety Report 7649462-7 (Version None)
Quarter: 2011Q3

REPORT INFORMATION
  Report Type: 
  Country: None (occurrence: None)
  Receive Date: 20110802
  Receipt Date: 20110722
  Transmission Date: 20111222
  Serious: No
  Sender: FDA-Public Use
  Company Number: US-JNJFOC-20110710607

PATIENT
  Sex: Male
  Weight: 79.38 kg

DRUGS (7)
  1. CLONAZEPAM [Concomitant]
     Indication: NERVOUSNESS
     Route: 048
  2. INVEGA SUSTENNA [Suspect]
     Indication: MOOD SWINGS
     Route: 030
     Dates: start: 20110722
  3. ADDERALL 10 [Concomitant]
     Indication: ATTENTION DEFICIT/HYPERACTIVITY DISORDER
     Route: 048
     Dates: start: 20030101
  4. INVEGA SUSTENNA [Suspect]
     Route: 030
     Dates: start: 20110201
  5. PEXEVA [Concomitant]
     Indication: ANTIDEPRESSANT THERAPY
     Route: 048
     Dates: start: 20090101
  6. PROVIGIL [Concomitant]
     Indication: ENERGY INCREASED
     Route: 048
     Dates: start: 20030101
  7. TESTOSTERONE [Concomitant]
     Indication: POST-TRAUMATIC STRESS DISORDER
     Route: 065

REACTIONS (3)
  - SELF-MEDICATION [None]
  - DEVICE LEAKAGE [None]
  - DRUG DOSE OMISSION [None]
